FAERS Safety Report 8207538-X (Version None)
Quarter: 2012Q1

REPORT INFORMATION
  Report Type: 
  Country: None (occurrence: None)
  Receive Date: 20120314
  Receipt Date: 20120307
  Transmission Date: 20120608
  Serious: Yes (Death)
  Sender: FDA-Public Use
  Company Number: US-CELGENEUS-163-21880-12022038

PATIENT
  Sex: Male

DRUGS (7)
  1. GLUCOPHAGE [Concomitant]
     Route: 065
  2. DECADRON [Concomitant]
     Route: 065
  3. NORVASC [Concomitant]
     Route: 065
  4. ASPIRIN [Concomitant]
     Route: 065
  5. REVLIMID [Suspect]
     Indication: MULTIPLE MYELOMA
     Dosage: 25 MILLIGRAM
     Route: 048
     Dates: start: 20120209, end: 20120210
  6. COZAAR [Concomitant]
     Route: 065
  7. REMERON [Concomitant]
     Route: 065

REACTIONS (1)
  - MULTIPLE MYELOMA [None]
